FAERS Safety Report 24768142 (Version 1)
Quarter: 2024Q4

REPORT INFORMATION
  Report Type: Spontaneous
  Country: IT (occurrence: IT)
  Receive Date: 20241223
  Receipt Date: 20241223
  Transmission Date: 20250115
  Serious: Yes (Other)
  Sender: TEVA
  Company Number: IT-TEVA-VS-3278229

PATIENT
  Age: 63 Year
  Sex: Male

DRUGS (2)
  1. TAMSULOSIN [Suspect]
     Active Substance: TAMSULOSIN
     Indication: Benign prostatic hyperplasia
     Route: 065
  2. BISOPROLOL [Concomitant]
     Active Substance: BISOPROLOL
     Indication: Hypertension
     Route: 065

REACTIONS (2)
  - Drug ineffective [Unknown]
  - Erectile dysfunction [Recovering/Resolving]
